FAERS Safety Report 6134832-9 (Version None)
Quarter: 2009Q1

REPORT INFORMATION
  Report Type: 
  Country: None (occurrence: None)
  Receive Date: 20090327
  Receipt Date: 20090319
  Transmission Date: 20090719
  Serious: Yes (Other)
  Sender: FDA-Public Use
  Company Number: US-WATSON-2009-00453

PATIENT
  Age: 48 Year
  Sex: Female

DRUGS (2)
  1. FENTANYL-75 [Suspect]
     Indication: BONE PAIN
     Dosage: 1 PATCH, Q 48 HOURS
     Route: 062
     Dates: start: 20090117, end: 20090127
  2. PREDNISONE (WATSON LABORATORIES) [Suspect]
     Indication: DRUG USE FOR UNKNOWN INDICATION
     Dosage: UNK
     Route: 065

REACTIONS (5)
  - HALLUCINATION, VISUAL [None]
  - MYOCARDIAL INFARCTION [None]
  - NIGHTMARE [None]
  - TACHYCARDIA [None]
  - URTICARIA [None]
